FAERS Safety Report 16766625 (Version 4)
Quarter: 2019Q4

REPORT INFORMATION
  Report Type: Spontaneous
  Country: US (occurrence: US)
  Receive Date: 20190903
  Receipt Date: 20191223
  Transmission Date: 20200122
  Serious: Yes (Other)
  Sender: FDA-Public Use
  Company Number: US-PFIZER INC-2019374458

PATIENT
  Age: 79 Year
  Sex: Female
  Weight: 80 kg

DRUGS (2)
  1. LETROZOLE. [Concomitant]
     Active Substance: LETROZOLE
     Dosage: 2.5 MG, UNK
     Dates: end: 20190830
  2. IBRANCE [Suspect]
     Active Substance: PALBOCICLIB
     Indication: BREAST CANCER METASTATIC
     Dosage: 125 MG, CYCLIC (DAYS 1-21 Q 28 DAYS)
     Route: 048
     Dates: start: 20171112, end: 20190830

REACTIONS (8)
  - Stomatitis [Unknown]
  - Necrosis [Unknown]
  - Groin pain [Not Recovered/Not Resolved]
  - Arthralgia [Not Recovered/Not Resolved]
  - Nausea [Not Recovered/Not Resolved]
  - Oral mucosal eruption [Unknown]
  - Neoplasm progression [Not Recovered/Not Resolved]
  - Arthritis [Unknown]

NARRATIVE: CASE EVENT DATE: 201905
